FAERS Safety Report 4783534-X (Version None)
Quarter: 2005Q3

REPORT INFORMATION
  Report Type: 
  Country: None (occurrence: None)
  Receive Date: 20050928
  Receipt Date: 20050928
  Transmission Date: 20060218
  Serious: Yes (Other)
  Sender: FDA-Public Use
  Company Number: None

PATIENT
  Age: 55 Year
  Sex: Female
  Weight: 41.2773 kg

DRUGS (1)
  1. REGLAN [Suspect]
     Indication: IMPAIRED GASTRIC EMPTYING
     Dosage: 10MG EVERY 6 HOURS IV
     Route: 042
     Dates: start: 20050918, end: 20050926

REACTIONS (3)
  - FEELING ABNORMAL [None]
  - PRURITUS [None]
  - TREMOR [None]
